FAERS Safety Report 10031056 (Version 1)
Quarter: 2014Q1

REPORT INFORMATION
  Report Type: Spontaneous
  Country: GR (occurrence: GR)
  Receive Date: 20140324
  Receipt Date: 20140324
  Transmission Date: 20141002
  Serious: Yes (Hospitalization)
  Sender: FDA-Public Use
  Company Number: GR-BIOGENIDEC-2014BI023956

PATIENT
  Age: 42 Year
  Sex: Female
  Weight: 70 kg

DRUGS (2)
  1. AVONEX [Suspect]
     Indication: MULTIPLE SCLEROSIS
     Route: 030
     Dates: start: 20120302
  2. DEPON [Concomitant]
     Indication: PREMEDICATION

REACTIONS (3)
  - Breast cancer in situ [Unknown]
  - Cervical polyp [Unknown]
  - Psoriasis [Recovered/Resolved]
